FAERS Safety Report 8531123-3 (Version None)
Quarter: 2012Q3

REPORT INFORMATION
  Report Type: 
  Country: None (occurrence: None)
  Receive Date: 20120710
  Receipt Date: 20120625
  Transmission Date: 20120928
  Serious: Yes (Hospitalization)
  Sender: FDA-Public Use
  Company Number: US-008749

PATIENT
  Age: 87 Year
  Sex: Male
  Weight: 61.6892 kg

DRUGS (5)
  1. FLOMAX [Concomitant]
  2. ASPIRIN [Concomitant]
  3. KETOCONAZOLE [Concomitant]
  4. PREDNISONE [Concomitant]
  5. DEGARELIX 80 MG [Suspect]
     Indication: PROSTATE CANCER
     Dosage: (80 MG 1X/MONTH SUBCUTANEOUS)
     Route: 058
     Dates: start: 20120120, end: 20120620

REACTIONS (10)
  - IMMEDIATE POST-INJECTION REACTION [None]
  - INJECTION SITE NODULE [None]
  - PYREXIA [None]
  - SYNCOPE [None]
  - DISORIENTATION [None]
  - HYPOTENSION [None]
  - HEART RATE DECREASED [None]
  - PAIN [None]
  - BLOOD PRESSURE INCREASED [None]
  - CHILLS [None]
